FAERS Safety Report 5918313-0 (Version None)
Quarter: 2008Q4

REPORT INFORMATION
  Report Type: 
  Country: None (occurrence: None)
  Receive Date: 20081010
  Receipt Date: 20081002
  Transmission Date: 20090506
  Serious: Yes (Hospitalization, Other)
  Sender: FDA-Public Use
  Company Number: 2008SP020084

PATIENT
  Sex: Male

DRUGS (3)
  1. PROVENTIL INHALER (ALBUTEROL) (90 MCG) [Suspect]
     Indication: CHRONIC OBSTRUCTIVE PULMONARY DISEASE
     Dosage: PO
     Route: 048
  2. ALBUTEROL [Suspect]
     Indication: CHRONIC OBSTRUCTIVE PULMONARY DISEASE
     Dosage: PO
     Route: 048
  3. PROVENTIL-HFA [Concomitant]

REACTIONS (1)
  - COLLAPSE OF LUNG [None]
